FAERS Safety Report 7591242-5 (Version None)
Quarter: 2011Q3

REPORT INFORMATION
  Report Type: 
  Country: None (occurrence: None)
  Receive Date: 20110706
  Receipt Date: 20110627
  Transmission Date: 20111222
  Serious: No
  Sender: FDA-Public Use
  Company Number: US-BIOGENIDEC-2010BI017469

PATIENT
  Sex: Female

DRUGS (1)
  1. TYSABRI [Suspect]
     Indication: MULTIPLE SCLEROSIS
     Route: 042
     Dates: start: 20090825

REACTIONS (11)
  - ABASIA [None]
  - DEPRESSION [None]
  - GAIT DISTURBANCE [None]
  - MULTIPLE SCLEROSIS RELAPSE [None]
  - MUSCLE SPASMS [None]
  - FATIGUE [None]
  - BALANCE DISORDER [None]
  - URINARY INCONTINENCE [None]
  - EYE PAIN [None]
  - WEIGHT LOSS POOR [None]
  - FALL [None]
